FAERS Safety Report 6524161-3 (Version None)
Quarter: 2009Q4

REPORT INFORMATION
  Report Type: 
  Country: None (occurrence: None)
  Receive Date: 20091231
  Receipt Date: 20091221
  Transmission Date: 20100525
  Serious: Yes (Other)
  Sender: FDA-Public Use
  Company Number: FR-WATSON-2009-11041

PATIENT
  Age: 57 Year
  Sex: Female

DRUGS (1)
  1. ATENOLOL [Suspect]
     Indication: HYPERTENSION
     Dosage: 100 MG, DAILY
     Route: 065
     Dates: start: 20070308, end: 20070422

REACTIONS (2)
  - HEPATITIS ACUTE [None]
  - HEPATOTOXICITY [None]
